FAERS Safety Report 20190586 (Version 1)
Quarter: 2021Q4

REPORT INFORMATION
  Report Type: Spontaneous
  Country: US (occurrence: None)
  Receive Date: 20211216
  Receipt Date: 20211216
  Transmission Date: 20220303
  Serious: No
  Sender: FDA-Public Use
  Company Number: US-MDD US Operations-2021SUP00034

PATIENT
  Age: 40 Year
  Sex: Female

DRUGS (15)
  1. TROKENDI XR [Suspect]
     Active Substance: TOPIRAMATE
     Indication: Seizure like phenomena
     Dosage: 50 MG, 1X/DAY
     Route: 048
     Dates: start: 2021, end: 2021
  2. TROKENDI XR [Suspect]
     Active Substance: TOPIRAMATE
     Indication: Migraine
     Dosage: 75 MG, 1X/DAY
     Route: 048
     Dates: start: 202104
  3. TROKENDI XR [Suspect]
     Active Substance: TOPIRAMATE
     Dosage: 25 MG, 1X/DAY
     Route: 048
     Dates: start: 2021, end: 2021
  4. TROKENDI XR [Suspect]
     Active Substance: TOPIRAMATE
     Dosage: 50 MG, 1X/DAY
     Route: 048
     Dates: start: 2021, end: 2021
  5. TROKENDI XR [Suspect]
     Active Substance: TOPIRAMATE
     Dosage: 75 MG, 1X/DAY
     Route: 048
     Dates: start: 202104
  6. TROKENDI XR [Suspect]
     Active Substance: TOPIRAMATE
     Dosage: 25 MG, 1X/DAY
     Route: 048
     Dates: start: 2021, end: 2021
  7. TROKENDI XR [Suspect]
     Active Substance: TOPIRAMATE
     Dosage: 50 MG, 1X/DAY
     Route: 048
     Dates: start: 2021, end: 2021
  8. TROKENDI XR [Suspect]
     Active Substance: TOPIRAMATE
     Dosage: 75 MG, 1X/DAY
     Route: 048
     Dates: start: 202104
  9. TROKENDI XR [Suspect]
     Active Substance: TOPIRAMATE
     Dosage: 25 MG, 1X/DAY
     Route: 048
     Dates: start: 2021, end: 2021
  10. TROKENDI XR [Suspect]
     Active Substance: TOPIRAMATE
     Indication: Migraine
     Dosage: 50 MG, 1X/DAY
     Route: 048
     Dates: start: 2021, end: 2021
  11. TROKENDI XR [Suspect]
     Active Substance: TOPIRAMATE
     Indication: Seizure like phenomena
     Dosage: 50 MG, 1X/DAY
     Route: 048
     Dates: start: 202101, end: 2021
  12. TROKENDI XR [Suspect]
     Active Substance: TOPIRAMATE
     Dosage: 50 MG, 1X/DAY
     Route: 048
     Dates: start: 2021, end: 2021
  13. TROKENDI XR [Suspect]
     Active Substance: TOPIRAMATE
     Dosage: 50 MG, 1X/DAY
     Route: 048
     Dates: start: 202101, end: 2021
  14. TROKENDI XR [Suspect]
     Active Substance: TOPIRAMATE
     Indication: Seizure like phenomena
     Dosage: 100 MG, 1X/DAY
     Route: 048
     Dates: start: 2021, end: 202104
  15. TROKENDI XR [Suspect]
     Active Substance: TOPIRAMATE
     Indication: Migraine

REACTIONS (8)
  - Tinnitus [Not Recovered/Not Resolved]
  - Hypoaesthesia [Not Recovered/Not Resolved]
  - Dizziness [Not Recovered/Not Resolved]
  - Decreased appetite [Not Recovered/Not Resolved]
  - Weight decreased [Unknown]
  - Nausea [Not Recovered/Not Resolved]
  - Confusional state [Not Recovered/Not Resolved]
  - Lack of spontaneous speech [Not Recovered/Not Resolved]

NARRATIVE: CASE EVENT DATE: 20210101
